FAERS Safety Report 20414429 (Version 2)
Quarter: 2022Q1

REPORT INFORMATION
  Report Type: Spontaneous
  Country: US (occurrence: US)
  Receive Date: 20220202
  Receipt Date: 20220304
  Transmission Date: 20220424
  Serious: No
  Sender: FDA-Public Use
  Company Number: US-TEVA-2022-US-2001999

PATIENT
  Sex: Female

DRUGS (8)
  1. AUSTEDO [Suspect]
     Active Substance: DEUTETRABENAZINE
     Indication: Tardive dyskinesia
     Dosage: 6 MILLIGRAM DAILY;
     Route: 065
     Dates: start: 20220120
  2. METFORMIN [Suspect]
     Active Substance: METFORMIN HYDROCHLORIDE
     Route: 065
  3. DEPAKOTE [Suspect]
     Active Substance: DIVALPROEX SODIUM
     Route: 065
  4. HALDOL [Concomitant]
     Active Substance: HALOPERIDOL
     Route: 065
  5. RESTORIL [Concomitant]
     Active Substance: TEMAZEPAM
     Route: 065
  6. LITHIUM [Concomitant]
     Active Substance: LITHIUM
     Route: 065
  7. TRAZODONE [Concomitant]
     Active Substance: TRAZODONE HYDROCHLORIDE
     Route: 065
  8. DONEPEZIL [Concomitant]
     Active Substance: DONEPEZIL
     Route: 065

REACTIONS (2)
  - Drug hypersensitivity [Unknown]
  - Inappropriate schedule of product administration [Unknown]
